FAERS Safety Report 25324492 (Version 1)
Quarter: 2025Q2

REPORT INFORMATION
  Report Type: Spontaneous
  Country: US (occurrence: None)
  Receive Date: 20250515
  Receipt Date: 20250515
  Transmission Date: 20250716
  Serious: Yes (Disabling)
  Sender: FDA-CTU
  Company Number: None

PATIENT
  Age: 44 Year
  Sex: Female
  Weight: 134.55 kg

DRUGS (9)
  1. VRAYLAR [Suspect]
     Active Substance: CARIPRAZINE
     Indication: Drug therapy
     Dosage: 7 CAPSULE(S) DAILY ORAL
     Route: 048
     Dates: start: 20250515, end: 20250515
  2. FLUOXETINE [Concomitant]
     Active Substance: FLUOXETINE HYDROCHLORIDE
  3. CYCLOBENZAPRINE [Concomitant]
     Active Substance: CYCLOBENZAPRINE
  4. pantroprazole [Concomitant]
  5. loratan [Concomitant]
  6. METOPROLOL [Concomitant]
     Active Substance: METOPROLOL
  7. ZETIA [Concomitant]
     Active Substance: EZETIMIBE
  8. ALBUTEROL [Concomitant]
     Active Substance: ALBUTEROL
  9. MELATONIN [Concomitant]
     Active Substance: MELATONIN

REACTIONS (9)
  - Heart rate irregular [None]
  - Heart rate increased [None]
  - Anxiety [None]
  - Bone pain [None]
  - Eye pruritus [None]
  - Musculoskeletal stiffness [None]
  - Musculoskeletal stiffness [None]
  - Chills [None]
  - Asthenia [None]

NARRATIVE: CASE EVENT DATE: 20250515
